FAERS Safety Report 6012855-8 (Version None)
Quarter: 2008Q4

REPORT INFORMATION
  Report Type: 
  Country: None (occurrence: None)
  Receive Date: 20081219
  Receipt Date: 20081208
  Transmission Date: 20090506
  Serious: Yes (Hospitalization)
  Sender: FDA-Public Use
  Company Number: JP-JNJFOC-20081200824

PATIENT
  Sex: Female
  Weight: 38 kg

DRUGS (11)
  1. REMICADE [Suspect]
     Route: 042
  2. REMICADE [Suspect]
     Dosage: 17 INFUSIONS ON UNKNOWN DATES
     Route: 042
  3. REMICADE [Suspect]
     Indication: RHEUMATOID ARTHRITIS
     Route: 042
  4. METOLATE [Suspect]
     Indication: RHEUMATOID ARTHRITIS
     Route: 048
  5. PREDONINE [Suspect]
     Indication: RHEUMATOID ARTHRITIS
     Route: 048
  6. MINOCYCLINE HCL [Suspect]
     Indication: RHEUMATOID ARTHRITIS
     Route: 048
  7. LOXONIN [Concomitant]
     Indication: RHEUMATOID ARTHRITIS
     Route: 048
  8. SELBEX [Concomitant]
     Indication: RHEUMATOID ARTHRITIS
     Route: 048
  9. FOLIAMIN [Concomitant]
     Indication: RHEUMATOID ARTHRITIS
     Route: 048
  10. BONALON [Concomitant]
     Indication: OSTEOPOROSIS
     Route: 048
  11. FERROMIA [Concomitant]
     Indication: ANAEMIA
     Route: 048

REACTIONS (2)
  - ANAEMIA [None]
  - DISSEMINATED TUBERCULOSIS [None]
